FAERS Safety Report 20470604 (Version 1)
Quarter: 2022Q1

REPORT INFORMATION
  Report Type: Spontaneous
  Country: GB (occurrence: GB)
  Receive Date: 20220214
  Receipt Date: 20220214
  Transmission Date: 20220423
  Serious: Yes (Other)
  Sender: FDA-Public Use
  Company Number: GB-BAUSCH-BL-2022-003856

PATIENT
  Age: 90 Year
  Sex: Male

DRUGS (1)
  1. DEXAMETHASONE [Suspect]
     Active Substance: DEXAMETHASONE
     Indication: Metastases to spine
     Dosage: LONG-TERM
     Route: 065

REACTIONS (2)
  - Immunosuppression [Unknown]
  - Inflammatory marker increased [Recovered/Resolved]
